FAERS Safety Report 22091680 (Version 1)
Quarter: 2023Q1

REPORT INFORMATION
  Report Type: Spontaneous
  Country: IT (occurrence: IT)
  Receive Date: 20230314
  Receipt Date: 20230314
  Transmission Date: 20230418
  Serious: Yes (Hospitalization)
  Sender: FDA-Public Use
  Company Number: None

PATIENT
  Age: 71 Year
  Sex: Male
  Weight: 78 kg

DRUGS (5)
  1. STEGLUJAN [Suspect]
     Active Substance: ERTUGLIFLOZIN PIDOLATE\SITAGLIPTIN PHOSPHATE
     Indication: Type 2 diabetes mellitus
     Dosage: 15 MG +100 MG 1 CP PER DAY
     Route: 048
     Dates: start: 20221110, end: 20230209
  2. NIMESULIDE [Suspect]
     Active Substance: NIMESULIDE
     Indication: Arthralgia
     Dosage: THE PATIENT REFERS NSAID INTAKE TO PAIN EXACERBATIONS
     Route: 048
     Dates: start: 20221203, end: 20230116
  3. LEVOTHYROXINE SODIUM [Concomitant]
     Active Substance: LEVOTHYROXINE SODIUM
     Indication: Hypothyroidism
     Dosage: 125 MICROGRAM DAILY
     Route: 048
  4. HYDROCHLOROTHIAZIDE\OLMESARTAN MEDOXOMIL [Concomitant]
     Active Substance: HYDROCHLOROTHIAZIDE\OLMESARTAN MEDOXOMIL
     Indication: Hypertension
     Dosage: 20+12.5 MG 1 CP
     Route: 048
  5. METHYLPREDNISOLONE [Concomitant]
     Active Substance: METHYLPREDNISOLONE
     Indication: Osteoarthritis
     Dosage: DOSAGE TO DECREASE
     Route: 048
     Dates: start: 20230110

REACTIONS (1)
  - Haemorrhagic necrotic pancreatitis [Recovered/Resolved with Sequelae]

NARRATIVE: CASE EVENT DATE: 20230209
